FAERS Safety Report 6998967-0 (Version None)
Quarter: 2010Q3

REPORT INFORMATION
  Report Type: 
  Country: None (occurrence: None)
  Receive Date: 20100920
  Receipt Date: 20091014
  Transmission Date: 20110219
  Serious: No
  Sender: FDA-Public Use
  Company Number: US-ASTRAZENECA-2007UW20204

PATIENT
  Sex: Female
  Weight: 59 kg

DRUGS (2)
  1. SEROQUEL [Suspect]
     Indication: ANXIETY
     Dosage: 25 MG IN MORING AND TWO 25 MG TABLETS AT EVENING
     Route: 048
     Dates: start: 20060101
  2. SEROQUEL [Suspect]
     Dosage: 25 MG IN MORING AND 50 MG AT NIGHT
     Route: 048

REACTIONS (2)
  - BLOOD CHOLESTEROL INCREASED [None]
  - SEBORRHOEA [None]
